FAERS Safety Report 8037005 (Version 2)
Quarter: 2013Q2

REPORT INFORMATION
  Report Type: Spontaneous
  Country: US (occurrence: None)
  Receive Date: 20110707
  Receipt Date: 20120705
  Transmission Date: 20140414
  Serious: Yes (Hospitalization, Other)
  Sender: FDA-Public Use
  Company Number: US-CYPR-2011-000020

PATIENT
  Age: 61 Year
  Sex: Female
  Weight: 88.91 kg

DRUGS (5)
  1. CLOPIDOGREL [Suspect]
     Indication: ANTIPLATELET THERAPY
     Dosage: (75 MG QD ORAL)
     Route: 048
     Dates: start: 20110322, end: 20110519
  2. ASPIRIN [Suspect]
     Indication: CORONARY ARTERY DISEASE
     Dosage: (162 MG QD ORAL) ; (325 MG QD, PT. WAS ON 325 MG DAILY AT THE TIME OF ENROLLMENT (20-APR-2010) ORAL)
     Route: 048
     Dates: start: 2010, end: 20110518
  3. HUMALOG [Concomitant]
  4. LANTUS [Concomitant]
  5. CYPHER STENT [Concomitant]

REACTIONS (1)
  - CORONARY ARTERY DISEASE [None]
